FAERS Safety Report 24532373 (Version 1)
Quarter: 2024Q4

REPORT INFORMATION
  Report Type: Spontaneous
  Country: FR (occurrence: FR)
  Receive Date: 20241022
  Receipt Date: 20241022
  Transmission Date: 20250114
  Serious: Yes (Hospitalization, Other)
  Sender: ASTELLAS
  Company Number: None

PATIENT
  Age: 65 Year
  Sex: Male
  Weight: 84 kg

DRUGS (1)
  1. ENFORTUMAB VEDOTIN [Suspect]
     Active Substance: ENFORTUMAB VEDOTIN
     Indication: Transitional cell carcinoma metastatic
     Dosage: 1.25MG/KG
     Route: 042
     Dates: start: 20231222, end: 20240126

REACTIONS (3)
  - Asthenia [Recovered/Resolved]
  - Hepatic cytolysis [Recovered/Resolved]
  - Erythema [Recovered/Resolved]

NARRATIVE: CASE EVENT DATE: 20240202
